FAERS Safety Report 6126490-4 (Version None)
Quarter: 2009Q1

REPORT INFORMATION
  Report Type: 
  Country: None (occurrence: None)
  Receive Date: 20090320
  Receipt Date: 20090310
  Transmission Date: 20090719
  Serious: Yes (Other)
  Sender: FDA-Public Use
  Company Number: JP-PFIZER INC-2009183993

PATIENT

DRUGS (2)
  1. ZOLOFT [Suspect]
     Route: 048
  2. ALL OTHER THERAPEUTIC PRODUCTS [Concomitant]

REACTIONS (3)
  - BLOOD SODIUM DECREASED [None]
  - DEHYDRATION [None]
  - INAPPROPRIATE ANTIDIURETIC HORMONE SECRETION [None]
